FAERS Safety Report 23405966 (Version 1)
Quarter: 2024Q1

REPORT INFORMATION
  Report Type: Spontaneous
  Country: US (occurrence: US)
  Receive Date: 20240116
  Receipt Date: 20240116
  Transmission Date: 20240410
  Serious: Yes (Hospitalization, Other)
  Sender: FDA-Public Use
  Company Number: US-BIOVITRUM-2023-US-020993

PATIENT
  Age: 9 Month
  Sex: Male
  Weight: 9.97 kg

DRUGS (3)
  1. SYNAGIS [Suspect]
     Active Substance: PALIVIZUMAB
     Indication: Antiviral prophylaxis
     Dosage: (100MG/ML)?MONTHLY?50MG/0.5ML
     Route: 030
     Dates: start: 202311
  2. SYNAGIS [Suspect]
     Active Substance: PALIVIZUMAB
     Indication: Premature baby
  3. CEFDINIR [Suspect]
     Active Substance: CEFDINIR
     Indication: Product used for unknown indication

REACTIONS (3)
  - Acute respiratory failure [Unknown]
  - Mental status changes [Unknown]
  - Haematochezia [Unknown]
